FAERS Safety Report 12123559 (Version 1)
Quarter: 2016Q1

REPORT INFORMATION
  Report Type: Spontaneous
  Country: US (occurrence: None)
  Receive Date: 20160226
  Receipt Date: 20160226
  Transmission Date: 20160526
  Serious: Yes (Other)
  Sender: FDA-Public Use
  Company Number: None

PATIENT
  Age: 56 Year
  Sex: Male

DRUGS (3)
  1. EFAVIRENZ [Concomitant]
     Active Substance: EFAVIRENZ
  2. VITAMIN D [Concomitant]
     Active Substance: CHOLECALCIFEROL
  3. SUSTIVA [Suspect]
     Active Substance: EFAVIRENZ
     Indication: HIV INFECTION
     Dosage: 1 DAILY
     Route: 048
     Dates: start: 20160110, end: 20160118

REACTIONS (1)
  - Rash [None]

NARRATIVE: CASE EVENT DATE: 20160110
